FAERS Safety Report 6887997-5 (Version None)
Quarter: 2010Q3

REPORT INFORMATION
  Report Type: 
  Country: None (occurrence: None)
  Receive Date: 20100730
  Receipt Date: 20100726
  Transmission Date: 20110219
  Serious: Yes (Hospitalization)
  Sender: FDA-Public Use
  Company Number: A0872359A

PATIENT
  Age: 62 Year
  Sex: Male

DRUGS (4)
  1. ADVAIR DISKUS 100/50 [Suspect]
     Indication: ASTHMA
     Dosage: 1PUFF TWICE PER DAY
     Route: 055
     Dates: start: 20090401
  2. COREG CR [Suspect]
     Indication: HEART RATE INCREASED
     Dosage: 10MG PER DAY
     Route: 048
     Dates: start: 20090401
  3. LISINOPRIL [Concomitant]
  4. ALBUTEROL [Concomitant]

REACTIONS (4)
  - ABDOMINAL DISTENSION [None]
  - ASTHMA [None]
  - OEDEMA PERIPHERAL [None]
  - WEIGHT INCREASED [None]
